FAERS Safety Report 8574496-8 (Version None)
Quarter: 2012Q3

REPORT INFORMATION
  Report Type: 
  Country: None (occurrence: None)
  Receive Date: 20120806
  Receipt Date: 20111025
  Transmission Date: 20120928
  Serious: No
  Sender: FDA-Public Use
  Company Number: US-ABBOTT-11P-163-0869289-00

PATIENT
  Sex: Female
  Weight: 99.88 kg

DRUGS (18)
  1. DEPAKOTE ER [Suspect]
     Indication: MANIA
  2. TRILEPTAL [Concomitant]
     Indication: PRODUCT USED FOR UNKNOWN INDICATION
  3. DEPAKOTE ER [Suspect]
     Route: 048
  4. ESTRADIOL [Concomitant]
     Indication: OESTROGEN REPLACEMENT THERAPY
  5. VESICARE [Concomitant]
     Indication: URINARY INCONTINENCE
  6. ATENOLOL [Concomitant]
     Indication: HYPERTENSION
  7. ATENOLOL [Concomitant]
     Indication: PALPITATIONS
  8. VITAMIN B COMPLEX CAP [Concomitant]
     Indication: SUPPLEMENTATION THERAPY
  9. DEPAKOTE [Concomitant]
     Indication: MANIA
  10. LUTEIN [Concomitant]
     Indication: SUPPLEMENTATION THERAPY
  11. MAGNESIUM [Concomitant]
     Indication: CARDIAC DISORDER
  12. VITAMIN B COMPLEX CAP [Concomitant]
     Indication: SUPPLEMENTATION THERAPY
  13. ALLOPURINOL [Concomitant]
     Indication: GOUT
  14. LIPITOR [Concomitant]
     Indication: BLOOD CHOLESTEROL
  15. MAGNESIUM [Concomitant]
     Indication: BLOOD MAGNESIUM DECREASED
  16. LAMICTAL [Concomitant]
     Indication: BIPOLAR I DISORDER
  17. GEODON [Concomitant]
     Indication: PRODUCT USED FOR UNKNOWN INDICATION
     Dates: start: 20110901, end: 20110901
  18. CITRACAL + D [Concomitant]
     Indication: SUPPLEMENTATION THERAPY

REACTIONS (3)
  - SWELLING [None]
  - OEDEMA PERIPHERAL [None]
  - BLOOD MAGNESIUM DECREASED [None]
